FAERS Safety Report 15530873 (Version 2)
Quarter: 2018Q4

REPORT INFORMATION
  Report Type: Not Available
  Country: US (occurrence: US)
  Receive Date: 20181018
  Receipt Date: 20181113
  Transmission Date: 20190205
  Serious: No
  Sender: FDA-Public Use
  Company Number: US-NEUROCRINE BIOSCIENCES INC.-2018NBI03076

PATIENT
  Age: 53 Year
  Sex: Male

DRUGS (5)
  1. KLONOPIN [Concomitant]
     Active Substance: CLONAZEPAM
     Dosage: TAKE AT NIGHT (BED) TIME, BUT DOES NOT TAKE EVERY NIGHT
  2. LITHIUM. [Concomitant]
     Active Substance: LITHIUM
  3. BENZTROPINE. [Concomitant]
     Active Substance: BENZTROPINE
  4. OLANZAPINE. [Concomitant]
     Active Substance: OLANZAPINE
     Dosage: TAKE AT BED TIME
  5. INGREZZA [Suspect]
     Active Substance: VALBENAZINE
     Indication: TARDIVE DYSKINESIA
     Route: 048
     Dates: start: 20181008, end: 20181011

REACTIONS (2)
  - Feeling hot [Unknown]
  - Tardive dyskinesia [Unknown]

NARRATIVE: CASE EVENT DATE: 201810
